FAERS Safety Report 6998106-6 (Version None)
Quarter: 2010Q3

REPORT INFORMATION
  Report Type: 
  Country: None (occurrence: None)
  Receive Date: 20100920
  Receipt Date: 20090922
  Transmission Date: 20110219
  Serious: No
  Sender: FDA-Public Use
  Company Number: US-ASTRAZENECA-2009UW12958

PATIENT
  Age: 331 Month
  Sex: Female
  Weight: 68 kg

DRUGS (8)
  1. SEROQUEL [Suspect]
     Indication: SCHIZOPHRENIA
     Route: 048
     Dates: start: 19990101
  2. SEROQUEL [Suspect]
     Indication: INSOMNIA
     Route: 048
     Dates: start: 19990101
  3. ABILIFY [Concomitant]
     Dosage: 5 MG-10 MG
     Dates: start: 20090401
  4. CLOZARIL [Concomitant]
  5. GEODON [Concomitant]
  6. NAVANE [Concomitant]
  7. STELAZINE [Concomitant]
  8. ZYPREXA [Concomitant]
     Indication: SCHIZOPHRENIA
     Dates: start: 19960101, end: 19990101

REACTIONS (6)
  - BLOOD CHOLESTEROL INCREASED [None]
  - BLOOD TRIGLYCERIDES INCREASED [None]
  - HYPERLIPIDAEMIA [None]
  - OBESITY [None]
  - TYPE 2 DIABETES MELLITUS [None]
  - WEIGHT INCREASED [None]
